FAERS Safety Report 9851978 (Version 1)
Quarter: 2014Q1

REPORT INFORMATION
  Report Type: Spontaneous
  Country: DE (occurrence: DE)
  Receive Date: 20140129
  Receipt Date: 20140129
  Transmission Date: 20141002
  Serious: Yes (Life-Threatening, Hospitalization)
  Sender: FDA-Public Use
  Company Number: GXKR2014DE000657

PATIENT
  Sex: 0

DRUGS (1)
  1. METFORMIN [Suspect]
     Indication: DIABETES MELLITUS
     Dosage: 100 MG, BID
     Route: 048
     Dates: end: 20140108

REACTIONS (2)
  - Renal failure acute [Recovering/Resolving]
  - Lactic acidosis [Recovering/Resolving]
